FAERS Safety Report 14142552 (Version 1)
Quarter: 2017Q4

REPORT INFORMATION
  Report Type: Spontaneous
  Country: CA (occurrence: CA)
  Receive Date: 20171030
  Receipt Date: 20171030
  Transmission Date: 20180321
  Serious: Yes (Other)
  Sender: FDA-Public Use
  Company Number: CA-BAYER-2017-208387

PATIENT
  Age: 43 Year
  Sex: Female
  Weight: 145 kg

DRUGS (1)
  1. GADOVIST [Suspect]
     Active Substance: GADOBUTROL
     Indication: NUCLEAR MAGNETIC RESONANCE IMAGING
     Dosage: 7 ML, ONCE
     Route: 042

REACTIONS (2)
  - Pulmonary congestion [Recovered/Resolved]
  - Pruritus [Recovered/Resolved]
